FAERS Safety Report 18962420 (Version 1)
Quarter: 2021Q1

REPORT INFORMATION
  Report Type: Spontaneous
  Country: LK (occurrence: LK)
  Receive Date: 20210303
  Receipt Date: 20210303
  Transmission Date: 20210420
  Serious: Yes (Other)
  Sender: FDA-Public Use
  Company Number: LK-ACCORD-218844

PATIENT
  Age: 29 Year
  Sex: Female

DRUGS (2)
  1. CISPLATIN. [Suspect]
     Active Substance: CISPLATIN
     Indication: LEIOMYOSARCOMA RECURRENT
     Route: 042
  2. DOXORUBICIN [Suspect]
     Active Substance: DOXORUBICIN
     Indication: LEIOMYOSARCOMA RECURRENT

REACTIONS (2)
  - Neuropathy peripheral [Unknown]
  - Toxicity to various agents [Unknown]
